FAERS Safety Report 4336201-0 (Version None)
Quarter: 2004Q2

REPORT INFORMATION
  Report Type: 
  Country: None (occurrence: None)
  Receive Date: 20040407
  Receipt Date: 20040323
  Transmission Date: 20050107
  Serious: Yes (Hospitalization)
  Sender: FDA-Public Use
  Company Number: A01200401355

PATIENT
  Age: 52 Year
  Sex: Female

DRUGS (2)
  1. ELOXATIN [Suspect]
     Dosage: 130 MG/M2 Q3W; INTRAVENOUS NOS; A FEW HOURS
     Route: 042
     Dates: start: 20040101, end: 20040101
  2. 5-FU - UNKNOWN - UNIT DOSE : [Suspect]

REACTIONS (4)
  - CATATONIA [None]
  - MUSCLE CRAMP [None]
  - MUSCULOSKELETAL STIFFNESS [None]
  - STRIDOR [None]
